FAERS Safety Report 25222961 (Version 2)
Quarter: 2025Q2

REPORT INFORMATION
  Report Type: Spontaneous
  Country: FR (occurrence: FR)
  Receive Date: 20250422
  Receipt Date: 20250506
  Transmission Date: 20250716
  Serious: Yes (Other)
  Sender: Kenvue
  Company Number: None

PATIENT

DRUGS (2)
  1. CETIRIZINE HYDROCHLORIDE [Suspect]
     Active Substance: CETIRIZINE HYDROCHLORIDE
     Indication: Maternal exposure during pregnancy
     Dosage: 10 MILLIGRAM, ONCE A DAY
     Route: 064
     Dates: start: 20150906
  2. SERETIDE [Suspect]
     Active Substance: FLUTICASONE PROPIONATE\SALMETEROL XINAFOATE
     Indication: Maternal exposure during pregnancy
     Dosage: 1 DOSAGE FORM, TWICE A DAY; SERETIDE DISKUS 500/50 MICROGRAMS/DOSE, INHALATION POWDER IN SINGLE-DOSE
     Route: 064
     Dates: start: 202310, end: 2024

REACTIONS (2)
  - Neonatal infection [Recovered/Resolved]
  - Maternal exposure timing unspecified [Recovered/Resolved]

NARRATIVE: CASE EVENT DATE: 20231001
